FAERS Safety Report 19007459 (Version 1)
Quarter: 2021Q1

REPORT INFORMATION
  Report Type: Spontaneous
  Country: US (occurrence: US)
  Receive Date: 20210315
  Receipt Date: 20210315
  Transmission Date: 20210420
  Serious: Yes (Other)
  Sender: FDA-Public Use
  Company Number: None

PATIENT
  Age: 59 Year
  Sex: Female
  Weight: 81 kg

DRUGS (1)
  1. OXYCODONE [Suspect]
     Active Substance: OXYCODONE
     Indication: PAIN
     Dosage: ?          QUANTITY:5 TABLET(S);OTHER FREQUENCY:5X A DAY;?
     Route: 048
     Dates: start: 20210212, end: 20210308

REACTIONS (8)
  - Illness [None]
  - Drug withdrawal syndrome [None]
  - Lethargy [None]
  - Feeling abnormal [None]
  - Salivary hypersecretion [None]
  - Quality of life decreased [None]
  - Oral disorder [None]
  - Hypertension [None]

NARRATIVE: CASE EVENT DATE: 20210212
